FAERS Safety Report 9859395 (Version 3)
Quarter: 2014Q2

REPORT INFORMATION
  Report Type: Report from Study
  Country: BR (occurrence: BR)
  Receive Date: 20140131
  Receipt Date: 20140402
  Transmission Date: 20141212
  Serious: Yes (Hospitalization, Other)
  Sender: FDA-Public Use
  Company Number: PHHY2014BR009937

PATIENT
  Sex: Female

DRUGS (3)
  1. DIOVAN HCT [Suspect]
     Indication: HYPERTENSION
     Dosage: 2 DF (160 MG VALSA/12.5 MG HCT) DAILY
     Route: 048
  2. CONCOR [Concomitant]
     Indication: CARDIAC MURMUR
     Dosage: 2 DF, (2.5 MG) DAILY
     Route: 048
  3. SELOZOK [Concomitant]
     Indication: HYPERTENSION
     Dosage: 2 DF (50 MG) DAILY
     Route: 048

REACTIONS (9)
  - Cerebrovascular accident [Recovering/Resolving]
  - Gait disturbance [Recovering/Resolving]
  - Speech disorder [Recovering/Resolving]
  - Hand deformity [Recovering/Resolving]
  - Movement disorder [Recovering/Resolving]
  - Blood pressure increased [Recovered/Resolved]
  - Hyperthyroidism [Recovering/Resolving]
  - Arrhythmia [Recovered/Resolved]
  - Dyspnoea [Recovered/Resolved]
